FAERS Safety Report 20546463 (Version 1)
Quarter: 2022Q1

REPORT INFORMATION
  Report Type: Spontaneous
  Country: US (occurrence: US)
  Receive Date: 20220303
  Receipt Date: 20220303
  Transmission Date: 20220424
  Serious: No
  Sender: FDA-Public Use
  Company Number: US-ALLERGAN-2116667US

PATIENT
  Age: 84 Year
  Sex: Female
  Weight: 81.633 kg

DRUGS (1)
  1. RESTASIS [Suspect]
     Active Substance: CYCLOSPORINE
     Indication: Dry eye
     Dosage: UNK
     Route: 047
     Dates: start: 20210319

REACTIONS (2)
  - Eye injury [Unknown]
  - Product container issue [Unknown]

NARRATIVE: CASE EVENT DATE: 20210319
